FAERS Safety Report 17788172 (Version 1)
Quarter: 2020Q2

REPORT INFORMATION
  Report Type: Report from Study
  Country: CR (occurrence: CR)
  Receive Date: 20200514
  Receipt Date: 20200514
  Transmission Date: 20200714
  Serious: Yes (Life-Threatening, Other)
  Sender: FDA-Public Use
  Company Number: NVSC2020CR130740

PATIENT
  Sex: Female

DRUGS (1)
  1. SCAPHO [Suspect]
     Active Substance: SECUKINUMAB
     Indication: ANKYLOSING SPONDYLITIS
     Dosage: 150 MG, QMO
     Route: 058
     Dates: start: 20191022

REACTIONS (10)
  - Asthenopia [Unknown]
  - Vision blurred [Recovering/Resolving]
  - Pain in extremity [Recovering/Resolving]
  - Eye swelling [Recovering/Resolving]
  - Stress [Recovering/Resolving]
  - Oral herpes [Recovering/Resolving]
  - Discomfort [Recovering/Resolving]
  - Dry eye [Recovering/Resolving]
  - Swelling [Recovering/Resolving]
  - Eye burns [Recovering/Resolving]
